FAERS Safety Report 8181988-2 (Version None)
Quarter: 2012Q1

REPORT INFORMATION
  Report Type: 
  Country: None (occurrence: None)
  Receive Date: 20120302
  Receipt Date: 20120222
  Transmission Date: 20120608
  Serious: Yes (Other)
  Sender: FDA-Public Use
  Company Number: US-ASTRAZENECA-2012SE06316

PATIENT
  Age: 77 Year
  Sex: Female

DRUGS (4)
  1. TOPROL-XL [Suspect]
     Route: 048
  2. XELODA [Concomitant]
  3. METOPROLOL TARTRATE [Suspect]
  4. HERCEPTIN [Concomitant]

REACTIONS (2)
  - PALPITATIONS [None]
  - NEOPLASM MALIGNANT [None]
